FAERS Safety Report 23090488 (Version 10)
Quarter: 2024Q4

REPORT INFORMATION
  Report Type: Spontaneous
  Country: US (occurrence: US)
  Receive Date: 20231020
  Receipt Date: 20241219
  Transmission Date: 20250114
  Serious: Yes (Hospitalization)
  Sender: PFIZER
  Company Number: US-PFIZER INC-PV202300172417

PATIENT
  Age: 61 Year
  Sex: Female
  Weight: 67.574 kg

DRUGS (30)
  1. IBRANCE [Suspect]
     Active Substance: PALBOCICLIB
     Indication: Breast cancer female
     Dosage: 1 TABLET ON DAYS 1-21 OF A 28 DAY CYCLE (3 WEEKS ON ONE WEEK OFF) TAKE WITH OR WITHOUT FOOD
     Route: 048
     Dates: start: 20231005
  2. IBRANCE [Suspect]
     Active Substance: PALBOCICLIB
     Dosage: 1 TABLET ON DAYS 1-21 OF A 28 DAY CYCLE (3 WEEKS ON ONE WEEK OFF) TAKE WITH OR WITHOUT FOOD
     Route: 048
     Dates: start: 20231012, end: 20241118
  3. AMITRIPTYLINE [Concomitant]
     Active Substance: AMITRIPTYLINE
     Dosage: UNK
  4. ANASTROZOLE [Concomitant]
     Active Substance: ANASTROZOLE
     Indication: Breast cancer metastatic
     Dosage: 1 MG, DAILY
  5. BISACODYL [Concomitant]
     Active Substance: BISACODYL
     Dosage: UNK
  6. CANNABIDIOL [Concomitant]
     Active Substance: CANNABIDIOL
     Dosage: UNK
  7. CLINDAMYCIN [Concomitant]
     Active Substance: CLINDAMYCIN
     Dosage: UNK
  8. DEXLANSOPRAZOLE [Concomitant]
     Active Substance: DEXLANSOPRAZOLE
     Dosage: UNK
  9. DICLOFENAC [Concomitant]
     Active Substance: DICLOFENAC
     Dosage: UNK %
  10. DULOXETINE [Concomitant]
     Active Substance: DULOXETINE
     Dosage: UNK
  11. EUCERIN [Concomitant]
     Active Substance: ENSULIZOLE\EUCERIN\OCTINOXATE\OCTISALATE\TITANIUM DIOXIDE\ZINC OXIDE
     Dosage: UNK
  12. EXEMESTANE [Concomitant]
     Active Substance: EXEMESTANE
     Dosage: UNK
  13. FERROUS SULFATE [Concomitant]
     Active Substance: FERROUS SULFATE
     Dosage: UNK
  14. FLUTICASONE [Concomitant]
     Active Substance: FLUTICASONE
     Dosage: 44 UG
  15. GABAPENTIN [Concomitant]
     Active Substance: GABAPENTIN
     Dosage: UNK
  16. LANTUS SOLOSTAR [Concomitant]
     Active Substance: INSULIN GLARGINE
     Dosage: 100/ML
  17. LEVOFLOXACIN [Concomitant]
     Active Substance: LEVOFLOXACIN
     Dosage: UNK
  18. LIDOCAINE [Concomitant]
     Active Substance: LIDOCAINE
     Dosage: UNK
  19. NAPROXEN [Concomitant]
     Active Substance: NAPROXEN
     Dosage: UNK
  20. NOVOLOG [Concomitant]
     Active Substance: INSULIN ASPART
     Dosage: UNK
  21. OLANZAPINE [Concomitant]
     Active Substance: OLANZAPINE
     Dosage: UNK
  22. ONDANSETRON [Concomitant]
     Active Substance: ONDANSETRON
     Dosage: UNK
  23. OXYCODONE [Concomitant]
     Active Substance: OXYCODONE
     Dosage: UNK
  24. PANTOPRAZOLE [Concomitant]
     Active Substance: PANTOPRAZOLE
     Dosage: UNK
  25. PERCOCET [Concomitant]
     Active Substance: ACETAMINOPHEN\OXYCODONE HYDROCHLORIDE
     Dosage: UNK (5-325 MG)
  26. PROAIR HFA [Concomitant]
     Active Substance: ALBUTEROL SULFATE
     Dosage: UNK
  27. SENNOSIDES [Concomitant]
     Active Substance: SENNOSIDES
     Dosage: UNK
  28. TOPIRAMATE [Concomitant]
     Active Substance: TOPIRAMATE
     Dosage: UNK
  29. TRAZODONE [Concomitant]
     Active Substance: TRAZODONE HYDROCHLORIDE
     Dosage: UNK
  30. TYLENOL [Concomitant]
     Active Substance: ACETAMINOPHEN
     Dosage: UNK

REACTIONS (7)
  - Influenza [Unknown]
  - White blood cell count decreased [Recovered/Resolved]
  - Arthralgia [Unknown]
  - Hyperhidrosis [Not Recovered/Not Resolved]
  - Peripheral swelling [Unknown]
  - Diarrhoea [Unknown]
  - Fatigue [Recovered/Resolved]

NARRATIVE: CASE EVENT DATE: 20230101
